FAERS Safety Report 9458401 (Version 1)
Quarter: 2013Q3

REPORT INFORMATION
  Report Type: Spontaneous
  Country: US (occurrence: US)
  Receive Date: 20130814
  Receipt Date: 20130814
  Transmission Date: 20140515
  Serious: Yes (Other)
  Sender: FDA-Public Use
  Company Number: US-TEVA-425550USA

PATIENT
  Sex: Female

DRUGS (1)
  1. COPAXONE [Suspect]
     Indication: MULTIPLE SCLEROSIS

REACTIONS (7)
  - Injection related reaction [Unknown]
  - Eye swelling [Unknown]
  - Eye pruritus [Unknown]
  - Urticaria [Unknown]
  - Swelling face [Unknown]
  - Oedema mouth [Unknown]
  - Dyspnoea [Unknown]
